FAERS Safety Report 20890026 (Version 1)
Quarter: 2022Q2

REPORT INFORMATION
  Report Type: Spontaneous
  Country: US (occurrence: US)
  Receive Date: 20220530
  Receipt Date: 20220530
  Transmission Date: 20220721
  Serious: No
  Sender: FDA-Public Use
  Company Number: US-ELI_LILLY_AND_COMPANY-US202205011844

PATIENT
  Sex: Female

DRUGS (7)
  1. VERZENIO [Suspect]
     Active Substance: ABEMACICLIB
     Indication: Glioblastoma
     Dosage: 100 MG, BID
     Route: 048
  2. GLEOSTINE [Concomitant]
     Active Substance: LOMUSTINE
     Indication: Glioblastoma
     Dosage: 100 MG, OTHER, EVERY 6 WEEKS
     Route: 065
  3. LYNPARZA [Concomitant]
     Active Substance: OLAPARIB
     Indication: Glioblastoma
     Dosage: 100 MG, DAILY, EVERY EVENING
     Route: 065
  4. HYDROXYCHLOROQUINE [Concomitant]
     Active Substance: HYDROXYCHLOROQUINE
     Indication: Glioblastoma
     Dosage: 100 MG, BID
     Route: 065
  5. ZOFRAN [Concomitant]
     Active Substance: ONDANSETRON HYDROCHLORIDE
     Indication: Product used for unknown indication
     Dosage: UNK, UNKNOWN
     Route: 065
  6. TYLENOL [Concomitant]
     Active Substance: ACETAMINOPHEN
     Indication: Product used for unknown indication
     Dosage: UNK, UNKNOWN
     Route: 065
  7. PHENERGAN [Concomitant]
     Active Substance: PROMETHAZINE HYDROCHLORIDE
     Indication: Product used for unknown indication
     Dosage: UNK, UNKNOWN
     Route: 065

REACTIONS (5)
  - Dysphagia [Not Recovered/Not Resolved]
  - Abdominal pain [Not Recovered/Not Resolved]
  - Diarrhoea [Not Recovered/Not Resolved]
  - Off label use [Unknown]
  - Product preparation issue [Unknown]
